FAERS Safety Report 6972305-1 (Version None)
Quarter: 2010Q3

REPORT INFORMATION
  Report Type: 
  Country: None (occurrence: None)
  Receive Date: 20100909
  Receipt Date: 20100827
  Transmission Date: 20110219
  Serious: Yes (Hospitalization, Other)
  Sender: FDA-Public Use
  Company Number: PHHY2010DE12952

PATIENT
  Sex: Female

DRUGS (7)
  1. RASILEZ [Suspect]
     Indication: HYPERTENSION
     Dosage: 1 DF, QD
     Dates: start: 20100629
  2. TORASEMIDE [Concomitant]
     Indication: HYPERTENSION
     Dosage: 10 MG/DAY
     Route: 048
     Dates: start: 20090629
  3. CARVEDILOL [Concomitant]
     Indication: HYPERTENSION
     Dosage: 75 MG/DAY
     Route: 048
     Dates: start: 20091019
  4. ENALAPRIL MALEATE [Concomitant]
     Indication: HYPERTENSION
     Dosage: 40 MG/DAY
     Route: 048
     Dates: start: 20090629
  5. NATRILIX [Concomitant]
     Dosage: 1.5 MG/DAY
     Route: 048
     Dates: start: 20100303
  6. MARCUMAR [Concomitant]
  7. NITRO-SPRAY [Concomitant]
     Dosage: PRN

REACTIONS (2)
  - BLOOD PRESSURE INCREASED [None]
  - HEART RATE INCREASED [None]
